FAERS Safety Report 16830137 (Version 2)
Quarter: 2019Q3

REPORT INFORMATION
  Report Type: Report from Study
  Country: None (occurrence: GR)
  Receive Date: 20190919
  Receipt Date: 20190925
  Transmission Date: 20191005
  Serious: Yes (Hospitalization)
  Sender: FDA-Public Use
  Company Number: GR-ABBVIE-19K-066-2929023-00

PATIENT
  Age: 68 Year
  Sex: Female
  Weight: 53 kg

DRUGS (4)
  1. MADOPAR [Concomitant]
     Active Substance: BENSERAZIDE HYDROCHLORIDE\LEVODOPA
     Indication: PARKINSON^S DISEASE
     Route: 048
  2. DUODOPA [Suspect]
     Active Substance: CARBIDOPA\LEVODOPA
     Indication: PARKINSON^S DISEASE
     Dosage: MORNING DOSE:8.5ML; CONTINUOUS RATE:5.6ML/H; EXTRA DOSE:2.0ML
     Route: 050
     Dates: start: 20160624
  3. SYMMETREL [Concomitant]
     Active Substance: AMANTADINE HYDROCHLORIDE
     Indication: PARKINSON^S DISEASE
     Route: 048
  4. CLONOTRIL [Concomitant]
     Active Substance: CLONAZEPAM
     Indication: INSOMNIA
     Route: 048

REACTIONS (7)
  - Pyrexia [Recovered/Resolved]
  - Stoma site discharge [Recovered/Resolved]
  - Decubitus ulcer [Not Recovered/Not Resolved]
  - Limb deformity [Unknown]
  - Catheter site dermatitis [Not Recovered/Not Resolved]
  - Weight decreased [Not Recovered/Not Resolved]
  - White blood cell count increased [Recovered/Resolved]

NARRATIVE: CASE EVENT DATE: 201909
